FAERS Safety Report 16327946 (Version 5)
Quarter: 2025Q3

REPORT INFORMATION
  Report Type: Spontaneous
  Country: EU (occurrence: EU)
  Receive Date: 20190518
  Receipt Date: 20250721
  Transmission Date: 20251020
  Serious: Yes (Other)
  Sender: AUROBINDO
  Company Number: EU-AUROBINDO-AUR-APL-2019-025625

PATIENT
  Age: 45 Year
  Sex: Female

DRUGS (2)
  1. ENTECAVIR [Suspect]
     Active Substance: ENTECAVIR
     Indication: Chronic hepatitis B
     Dosage: 0.5 MILLIGRAM, ONCE A DAY (TREATED FOR 8 YEARS WITH ENTECAVIR)
     Route: 065
     Dates: start: 200901
  2. ENTECAVIR [Suspect]
     Active Substance: ENTECAVIR
     Indication: Hepatitis B

REACTIONS (6)
  - Viral mutation identified [Unknown]
  - Hepatitis B [Unknown]
  - Pathogen resistance [Unknown]
  - Gene mutation [Unknown]
  - Hepatitis B surface antibody [Unknown]
  - Viraemia [Unknown]
